FAERS Safety Report 22395276 (Version 1)
Quarter: 2023Q2

REPORT INFORMATION
  Report Type: Spontaneous
  Country: US (occurrence: US)
  Receive Date: 20230601
  Receipt Date: 20230601
  Transmission Date: 20230722
  Serious: Yes (Other)
  Sender: FDA-Public Use
  Company Number: US-COOPERSURGICAL, INC.-US-2023CPS001705

PATIENT
  Age: 30 Year
  Sex: Female
  Weight: 79.365 kg

DRUGS (1)
  1. PARAGARD T 380A [Suspect]
     Active Substance: COPPER
     Indication: Contraception
     Dosage: UNK
     Route: 015
     Dates: start: 20230322, end: 20230411

REACTIONS (9)
  - Ovarian cyst [Not Recovered/Not Resolved]
  - Embedded device [Unknown]
  - Sensation of foreign body [Recovered/Resolved]
  - Device issue [Unknown]
  - Erythema [Unknown]
  - Pruritus [Unknown]
  - Device expulsion [Recovered/Resolved]
  - Muscle spasms [Unknown]
  - Vulvovaginal discomfort [Unknown]

NARRATIVE: CASE EVENT DATE: 20230401
